FAERS Safety Report 9731920 (Version 1)
Quarter: 2013Q4

REPORT INFORMATION
  Report Type: Report from Study
  Country: CO (occurrence: CO)
  Receive Date: 20131205
  Receipt Date: 20131205
  Transmission Date: 20140711
  Serious: Yes (Other)
  Sender: FDA-Public Use
  Company Number: PHHY2013CO139733

PATIENT
  Age: 45 Year
  Sex: Female

DRUGS (2)
  1. SIGNIFOR [Suspect]
     Indication: PITUITARY-DEPENDENT CUSHING^S SYNDROME
     Dosage: 0.9 UG, Q12H
     Route: 058
     Dates: start: 20131121
  2. METFORMIN [Concomitant]
     Indication: HYPERGLYCAEMIA
     Dosage: 3 DF (850 MG) TID
     Route: 048
     Dates: start: 20131128

REACTIONS (1)
  - Blood glucose increased [Recovering/Resolving]
